FAERS Safety Report 8348977-6 (Version None)
Quarter: 2012Q2

REPORT INFORMATION
  Report Type: 
  Country: None (occurrence: None)
  Receive Date: 20120510
  Receipt Date: 20120330
  Transmission Date: 20120825
  Serious: No
  Sender: FDA-Public Use
  Company Number: US-BAYER-2012-026335

PATIENT

DRUGS (1)
  1. CIPROFLOXACIN HCL [Suspect]

REACTIONS (1)
  - INJECTION SITE REACTION [None]
